FAERS Safety Report 14968133 (Version 7)
Quarter: 2019Q2

REPORT INFORMATION
  Report Type: Spontaneous
  Country: PT (occurrence: PT)
  Receive Date: 20180604
  Receipt Date: 20190405
  Transmission Date: 20190711
  Serious: Yes (Death, Other)
  Sender: FDA-Public Use
  Company Number: PT-ACCORD-015461

PATIENT
  Age: 32 Year
  Sex: Male

DRUGS (10)
  1. DIAZEPAM. [Suspect]
     Active Substance: DIAZEPAM
     Route: 048
  2. QUETIAPINE. [Suspect]
     Active Substance: QUETIAPINE
     Indication: BIPOLAR DISORDER
     Dosage: FILM-COATED TABLET, ORALLY
     Route: 048
  3. OLANZAPINE. [Suspect]
     Active Substance: OLANZAPINE
     Indication: BIPOLAR DISORDER
     Dosage: TABLET ORALLY
     Route: 048
  4. FLUOXETINE [Suspect]
     Active Substance: FLUOXETINE HYDROCHLORIDE
     Indication: BIPOLAR DISORDER
     Dosage: TABLET ORALLY, PASTILLE ORALLY
     Route: 048
  5. HALOPERIDOL. [Suspect]
     Active Substance: HALOPERIDOL
     Indication: BIPOLAR DISORDER
     Dosage: TABLET ORALLY
     Route: 048
  6. LORAZEPAM. [Suspect]
     Active Substance: LORAZEPAM
     Indication: BIPOLAR DISORDER
     Dosage: TABLET ORALLY
     Route: 048
  7. PAROXETINE. [Suspect]
     Active Substance: PAROXETINE
     Indication: BIPOLAR DISORDER
     Route: 048
  8. BROMAZEPAM [Suspect]
     Active Substance: BROMAZEPAM
     Indication: BIPOLAR DISORDER
     Dosage: TABLET ORALLY
     Route: 048
  9. RISPERIDONE. [Suspect]
     Active Substance: RISPERIDONE
     Route: 048
  10. NORDAZEPAM [Suspect]
     Active Substance: NORDAZEPAM
     Route: 048

REACTIONS (11)
  - Acute pulmonary oedema [Fatal]
  - Toxicity to various agents [Fatal]
  - Completed suicide [Fatal]
  - Visceral congestion [Fatal]
  - Vascular stenosis [Fatal]
  - Pulmonary congestion [Fatal]
  - Intentional overdose [Fatal]
  - Vascular occlusion [Fatal]
  - Angiopathy [Fatal]
  - Cerebrovascular stenosis [Fatal]
  - Oral discharge [Unknown]
